FAERS Safety Report 4662449-1 (Version None)
Quarter: 2005Q2

REPORT INFORMATION
  Report Type: 
  Country: None (occurrence: None)
  Receive Date: 20050513
  Receipt Date: 20050513
  Transmission Date: 20051028
  Serious: Yes (Hospitalization)
  Sender: FDA-Public Use
  Company Number: None

PATIENT
  Age: 56 Year
  Sex: Male

DRUGS (14)
  1. GATIFLOXACIN [Suspect]
     Indication: PNEUMONIA
     Dosage: 400MG PO PO QD
     Route: 048
     Dates: start: 20050315, end: 20050329
  2. ADVAIR DISKUS 100/50 [Concomitant]
  3. ALBUTEROL NEBULIZER TREATMENTS [Concomitant]
  4. CITALOPRAM HYDROBROMIDE [Concomitant]
  5. CLOTRIMAZOLE [Concomitant]
  6. FLUNISOLIDE [Concomitant]
  7. GATIFLOXACIN [Concomitant]
  8. GUAIFENESIN DM [Concomitant]
  9. HYDROCHLOROTHIAZIDE [Concomitant]
  10. IPRATROPIUM BROMIDE [Concomitant]
  11. NITROGLYCERIN [Concomitant]
  12. OMEPRAZOLE [Concomitant]
  13. PREDNISONE [Concomitant]
  14. SIMETHICONE [Concomitant]

REACTIONS (1)
  - CLOSTRIDIUM COLITIS [None]
